FAERS Safety Report 7817774-X (Version None)
Quarter: 2011Q4

REPORT INFORMATION
  Report Type: 
  Country: None (occurrence: None)
  Receive Date: 20111017
  Receipt Date: 20111014
  Transmission Date: 20120403
  Serious: Yes (Other)
  Sender: FDA-Public Use
  Company Number: US-PFIZER INC-2011246951

PATIENT
  Age: 46 Year
  Sex: Female

DRUGS (3)
  1. LYRICA [Suspect]
     Dosage: 100 MG, 3X/DAY
     Route: 048
  2. LIDODERM [Concomitant]
     Dosage: UNK
  3. LYRICA [Suspect]
     Indication: FIBROMYALGIA
     Dosage: UNK
     Route: 048

REACTIONS (2)
  - TREMOR [None]
  - OBESITY [None]
